FAERS Safety Report 22114815 (Version 1)
Quarter: 2023Q1

REPORT INFORMATION
  Report Type: Spontaneous
  Country: US (occurrence: None)
  Receive Date: 20230319
  Receipt Date: 20230319
  Transmission Date: 20230418
  Serious: No
  Sender: FDA-Public Use
  Company Number: None

PATIENT
  Age: 87 Year
  Sex: Female
  Weight: 72.03 kg

DRUGS (18)
  1. REPATHA [Suspect]
     Active Substance: EVOLOCUMAB
  2. c-pap [Concomitant]
  3. CLOPIDOGREL [Concomitant]
     Active Substance: CLOPIDOGREL BISULFATE
  4. venaflaxine [Concomitant]
  5. MYRBETRIQ [Suspect]
     Active Substance: MIRABEGRON
  6. omaprazone [Concomitant]
  7. MUPIROCIN [Concomitant]
  8. SYNTHROID [Concomitant]
  9. ammonium laclotion [Concomitant]
  10. BABY ASPIRIN [Concomitant]
  11. CALCIUM [Concomitant]
  12. CANNABIS SATIVA SUBSP. INDICA TOP [Concomitant]
     Active Substance: CANNABIS SATIVA SUBSP. INDICA TOP
  13. kirkland vitamin d3 [Concomitant]
  14. MIRALAX [Concomitant]
  15. perservision areds [Concomitant]
  16. SIMETHICONE (DIMETHICONE) [Concomitant]
     Active Substance: DIMETHICONE
  17. TYLENOL [Concomitant]
  18. vitamin [Concomitant]

REACTIONS (2)
  - Injection site bruising [None]
  - Injection site haematoma [None]

NARRATIVE: CASE EVENT DATE: 20230309
